FAERS Safety Report 7219636-8 (Version None)
Quarter: 2011Q1

REPORT INFORMATION
  Report Type: 
  Country: None (occurrence: None)
  Receive Date: 20110103
  Receipt Date: 20101216
  Transmission Date: 20110831
  Serious: Yes (Death)
  Sender: FDA-Public Use
  Company Number: UTC-003559

PATIENT
  Age: 47 Year
  Sex: Male

DRUGS (1)
  1. TYVASO [Suspect]
     Dosage: INHALATION
     Route: 055

REACTIONS (1)
  - RESPIRATORY TRACT INFECTION [None]
